FAERS Safety Report 7435278-3 (Version None)
Quarter: 2011Q2

REPORT INFORMATION
  Report Type: 
  Country: None (occurrence: None)
  Receive Date: 20110425
  Receipt Date: 20110414
  Transmission Date: 20111010
  Serious: Yes (Death, Hospitalization, Other)
  Sender: FDA-Public Use
  Company Number: US-AMGEN-USASP2011019917

PATIENT
  Age: 46 Year
  Sex: Female

DRUGS (4)
  1. ENBREL [Suspect]
  2. THYROID TAB [Concomitant]
  3. ENBREL [Suspect]
     Indication: ANKYLOSING SPONDYLITIS
     Dosage: 25 MG, UNK
     Dates: start: 20110218, end: 20110410
  4. LISINOPRIL [Concomitant]

REACTIONS (9)
  - DEATH [None]
  - FATIGUE [None]
  - PERFORMANCE STATUS DECREASED [None]
  - DYSPNOEA [None]
  - ASTHENIA [None]
  - CIRCULATORY COLLAPSE [None]
  - MALAISE [None]
  - HOSPITALISATION [None]
  - NASOPHARYNGITIS [None]
